FAERS Safety Report 25402172 (Version 2)
Quarter: 2025Q2

REPORT INFORMATION
  Report Type: Report from Study
  Country: CA (occurrence: CA)
  Receive Date: 20250605
  Receipt Date: 20250609
  Transmission Date: 20250716
  Serious: Yes (Other)
  Sender: NOVARTIS
  Company Number: CA-002147023-NVSC2024CA020635

PATIENT
  Sex: Female

DRUGS (5)
  1. KESIMPTA [Suspect]
     Active Substance: OFATUMUMAB
     Indication: Relapsing-remitting multiple sclerosis
     Dosage: 20 MG, QW
     Route: 058
     Dates: start: 20240122
  2. KESIMPTA [Suspect]
     Active Substance: OFATUMUMAB
     Dosage: 20 MG, QMO
     Route: 058
  3. KESIMPTA [Suspect]
     Active Substance: OFATUMUMAB
     Dosage: 20 MG, QMO
     Route: 058
     Dates: start: 20240125
  4. KESIMPTA [Suspect]
     Active Substance: OFATUMUMAB
     Route: 058
  5. KESIMPTA [Suspect]
     Active Substance: OFATUMUMAB
     Dosage: 20 MG, QMO (MONTHLY)
     Route: 065
     Dates: start: 20250601

REACTIONS (19)
  - Immunodeficiency [Unknown]
  - Insomnia [Unknown]
  - Tooth abscess [Unknown]
  - Injection site bruising [Unknown]
  - Influenza [Unknown]
  - Illness [Unknown]
  - Pain [Unknown]
  - Rhinorrhoea [Unknown]
  - Pyrexia [Recovered/Resolved]
  - Throat tightness [Unknown]
  - Sinus pain [Unknown]
  - Productive cough [Not Recovered/Not Resolved]
  - Secretion discharge [Not Recovered/Not Resolved]
  - Oropharyngeal pain [Recovered/Resolved]
  - Aphonia [Not Recovered/Not Resolved]
  - Malaise [Unknown]
  - Nasopharyngitis [Recovered/Resolved]
  - Inappropriate schedule of product administration [Unknown]
  - Headache [Unknown]

NARRATIVE: CASE EVENT DATE: 20250519
